FAERS Safety Report 12254604 (Version 3)
Quarter: 2016Q3

REPORT INFORMATION
  Report Type: Spontaneous
  Country: US (occurrence: US)
  Receive Date: 20160411
  Receipt Date: 20160715
  Transmission Date: 20161109
  Serious: Yes (Other)
  Sender: FDA-Public Use
  Company Number: US-TEVA-650631USA

PATIENT
  Age: 53 Year
  Sex: Female

DRUGS (4)
  1. PREMPRO [Concomitant]
     Active Substance: ESTROGENS, CONJUGATED\MEDROXYPROGESTERONE ACETATE
  2. BENADRYL [Concomitant]
     Active Substance: DIPHENHYDRAMINE HYDROCHLORIDE
     Indication: SEASONAL ALLERGY
  3. ZECUITY [Suspect]
     Active Substance: SUMATRIPTAN SUCCINATE
     Route: 062
     Dates: start: 20160322, end: 20160322
  4. NASOCORT [Concomitant]
     Active Substance: BUDESONIDE
     Indication: SEASONAL ALLERGY

REACTIONS (8)
  - Device leakage [Unknown]
  - Drug ineffective [Unknown]
  - Dry skin [Not Recovered/Not Resolved]
  - Sunburn [Unknown]
  - Application site discolouration [Unknown]
  - Application site discolouration [Recovered/Resolved]
  - Application site pain [Unknown]
  - Application site erythema [Unknown]

NARRATIVE: CASE EVENT DATE: 201603
